FAERS Safety Report 16177878 (Version 2)
Quarter: 2022Q1

REPORT INFORMATION
  Report Type: Spontaneous
  Country: CA (occurrence: CA)
  Receive Date: 20190410
  Receipt Date: 20220127
  Transmission Date: 20220424
  Serious: Yes (Hospitalization)
  Sender: FDA-Public Use
  Company Number: None

PATIENT
  Age: 72 Year
  Sex: Female
  Weight: 83.9 kg

DRUGS (4)
  1. JANUVIA [Suspect]
     Active Substance: SITAGLIPTIN PHOSPHATE
     Indication: Diabetes mellitus
     Dosage: 25 MILLIGRAM, 1 EVERY 1 (DAYS)
     Route: 048
     Dates: start: 20180702, end: 20180717
  2. DESICCATED THYROID (PORCINE) [Concomitant]
     Dosage: DOSAGE FORM: NOT SPECIFIED
  3. LIPIDIL [Concomitant]
     Active Substance: FENOFIBRATE
     Dosage: DOSAGE FORM: NOT SPECIFIED
  4. METFORMIN [Concomitant]
     Active Substance: METFORMIN HYDROCHLORIDE

REACTIONS (3)
  - Decreased appetite [Recovered/Resolved]
  - Pain [Recovered/Resolved]
  - Vomiting [Recovered/Resolved]

NARRATIVE: CASE EVENT DATE: 20180717
